FAERS Safety Report 26174542 (Version 1)
Quarter: 2025Q4

REPORT INFORMATION
  Report Type: Spontaneous
  Country: US (occurrence: US)
  Receive Date: 20251218
  Receipt Date: 20251218
  Transmission Date: 20260117
  Serious: No
  Sender: BAYER HEALTHCARE LLC
  Company Number: US-BAYER-2025A165330

PATIENT
  Age: 86 Year
  Sex: Male

DRUGS (1)
  1. MIRALAX [Suspect]
     Active Substance: POLYETHYLENE GLYCOL 3350
     Indication: Colonoscopy
     Dosage: ONE BOTTLE OF 14 ONCE DAILY DOSES IN 2 SPORTS BEVERAGES OF 28 OZ. ONE HALF THE EVENING BEFORE THE PR
     Route: 048

REACTIONS (1)
  - Product prescribing issue [Recovered/Resolved]
